FAERS Safety Report 8376997-4 (Version None)
Quarter: 2012Q2

REPORT INFORMATION
  Report Type: 
  Country: None (occurrence: None)
  Receive Date: 20120518
  Receipt Date: 20120511
  Transmission Date: 20120825
  Serious: Yes (Hospitalization)
  Sender: FDA-Public Use
  Company Number: 2011MA016819

PATIENT
  Age: 53 Year
  Sex: Male

DRUGS (3)
  1. ACETAMINOPHEN AND CODEINE PHOSPHATE [Suspect]
     Indication: INFLAMMATION
     Dosage: PO
     Route: 048
  2. CETIRIZINE HCL [Suspect]
     Indication: PRODUCT USED FOR UNKNOWN INDICATION
     Dosage: 2 DF; PO
     Route: 048
  3. DICLOFENAC SODIUM [Suspect]
     Indication: INFLAMMATION
     Dosage: 50 MG; PO
     Route: 048

REACTIONS (8)
  - CHEST DISCOMFORT [None]
  - DYSPNOEA [None]
  - DYSPEPSIA [None]
  - FEELING ABNORMAL [None]
  - HYPERSENSITIVITY [None]
  - HEADACHE [None]
  - SWELLING [None]
  - DIARRHOEA [None]
